FAERS Safety Report 8205139-0 (Version None)
Quarter: 2012Q1

REPORT INFORMATION
  Report Type: 
  Country: None (occurrence: None)
  Receive Date: 20120313
  Receipt Date: 20120305
  Transmission Date: 20120608
  Serious: Yes (Other)
  Sender: FDA-Public Use
  Company Number: JP-GLAXOSMITHKLINE-B0776512A

PATIENT
  Sex: Female
  Weight: 65 kg

DRUGS (7)
  1. AKINETON [Concomitant]
     Indication: PARKINSON'S DISEASE
     Dosage: 3MG PER DAY
     Route: 048
  2. LAMICTAL [Suspect]
     Dosage: 50MG PER DAY
     Route: 048
     Dates: start: 20111207, end: 20111213
  3. LAMICTAL [Suspect]
     Indication: BIPOLAR DISORDER
     Dosage: 25MG ALTERNATE DAYS
     Route: 048
     Dates: start: 20111109, end: 20111123
  4. LORAZEPAM [Concomitant]
     Indication: ANXIETY
     Dosage: 3MG PER DAY
     Route: 048
  5. LENDORMIN [Concomitant]
     Indication: INSOMNIA
     Route: 048
  6. DEPAKENE [Concomitant]
     Indication: BIPOLAR DISORDER
     Dosage: 1200MG PER DAY
     Route: 048
  7. LAMICTAL [Suspect]
     Dosage: 25MG PER DAY
     Route: 048
     Dates: start: 20111124, end: 20111206

REACTIONS (7)
  - C-REACTIVE PROTEIN INCREASED [None]
  - RASH GENERALISED [None]
  - ENANTHEMA [None]
  - ECZEMA [None]
  - TOXIC SKIN ERUPTION [None]
  - PRURITUS [None]
  - DRUG ERUPTION [None]
